FAERS Safety Report 8607387-4 (Version None)
Quarter: 2012Q3

REPORT INFORMATION
  Report Type: 
  Country: None (occurrence: None)
  Receive Date: 20120821
  Receipt Date: 20120809
  Transmission Date: 20120928
  Serious: Yes (Hospitalization)
  Sender: FDA-Public Use
  Company Number: US-BAYER-2012-039242

PATIENT
  Age: 40 Year
  Sex: Female
  Weight: 97.506 kg

DRUGS (12)
  1. METHOTREXATE [Concomitant]
  2. PREDNISONE [Concomitant]
     Dosage: 5 MG, DAILY
  3. NAPROSYN [Concomitant]
     Dosage: 500 MG, UNK
  4. YAZ [Suspect]
     Dosage: UNK
     Dates: start: 20051001, end: 20071027
  5. COLACE [Concomitant]
  6. LORTAB [Concomitant]
     Dosage: UNK UNK, PRN
  7. TOPROL-XL [Concomitant]
     Dosage: 100 MG, DAILY
  8. PLAVIX [Concomitant]
     Dosage: 75 MG, DAILY
  9. LIPITOR [Concomitant]
     Dosage: 80 MG, Q HS
  10. ATORVASTATIN [Concomitant]
  11. NEXIUM [Concomitant]
  12. FOLIC ACID [Concomitant]

REACTIONS (6)
  - PAIN [None]
  - HEMIPARESIS [None]
  - DEPRESSION [None]
  - CEREBROVASCULAR ACCIDENT [None]
  - PULMONARY EMBOLISM [None]
  - ABASIA [None]
